FAERS Safety Report 8523273-2 (Version None)
Quarter: 2012Q3

REPORT INFORMATION
  Report Type: 
  Country: None (occurrence: None)
  Receive Date: 20120706
  Receipt Date: 20120621
  Transmission Date: 20120928
  Serious: Yes (Hospitalization)
  Sender: FDA-Public Use
  Company Number: TCI2012A03284

PATIENT
  Age: 70 Year
  Sex: Male

DRUGS (4)
  1. ACTOS [Suspect]
     Indication: TYPE 2 DIABETES MELLITUS
     Dosage: 15 MG (15 MG, 1 D), PER ORAL
     Route: 048
     Dates: start: 20090520, end: 20101205
  2. CALCIUM CHANNEL BLOCKERS [Concomitant]
  3. DIURETICS [Concomitant]
  4. ANTITHROMBOTIC AGENTS [Concomitant]

REACTIONS (6)
  - HIGH DENSITY LIPOPROTEIN DECREASED [None]
  - BLOOD TRIGLYCERIDES INCREASED [None]
  - DYSLIPIDAEMIA [None]
  - ACUTE MYOCARDIAL INFARCTION [None]
  - HAEMOGLOBIN DECREASED [None]
  - HYPERTENSION [None]
